FAERS Safety Report 19579644 (Version 1)
Quarter: 2021Q3

REPORT INFORMATION
  Report Type: Spontaneous
  Country: NL (occurrence: NL)
  Receive Date: 20210719
  Receipt Date: 20210719
  Transmission Date: 20211014
  Serious: Yes (Other)
  Sender: FDA-Public Use
  Company Number: NL-MYLANLABS-2021M1043460

PATIENT
  Age: 73 Year
  Sex: Female
  Weight: 100 kg

DRUGS (7)
  1. XARELTO [Concomitant]
     Active Substance: RIVAROXABAN
     Dosage: 15 MILLIGRAM, BID (15MG 2DD1)
  2. METOCLOPRAMIDE. [Concomitant]
     Active Substance: METOCLOPRAMIDE
     Dosage: TABLET, 10 MG (MILLIGRAM)
  3. OMEPRAZOL                          /00661201/ [Concomitant]
     Active Substance: OMEPRAZOLE
     Dosage: 20 MILLIGRAM, QD (20MG 1DD1)
  4. DEXAMETHASON                       /00016001/ [Concomitant]
     Active Substance: DEXAMETHASONE
     Dosage: TABLET, 4 MG (MILLIGRAM)
  5. DOCETAXEL. [Suspect]
     Active Substance: DOCETAXEL
     Indication: BREAST CANCER
     Dosage: OPLOSSING VOOR INFUUS, 20 MG/ML (MILLIGRAM PER MILLILITER)
  6. PERJETA [Suspect]
     Active Substance: PERTUZUMAB
     Indication: BREAST CANCER
     Dosage: 420 MG, DERDE KUUR
     Dates: start: 20210129, end: 20210402
  7. HERZUMA [Suspect]
     Active Substance: TRASTUZUMAB-PKRB
     Indication: BREAST CANCER
     Dosage: 150 MILLIGRAM

REACTIONS (5)
  - Diarrhoea [Unknown]
  - Nausea [Unknown]
  - Parosmia [Unknown]
  - Pulmonary embolism [Unknown]
  - Taste disorder [Unknown]

NARRATIVE: CASE EVENT DATE: 20210129
